FAERS Safety Report 7791569-8 (Version None)
Quarter: 2011Q4

REPORT INFORMATION
  Report Type: 
  Country: None (occurrence: None)
  Receive Date: 20111003
  Receipt Date: 20110925
  Transmission Date: 20120403
  Serious: Yes (Death)
  Sender: FDA-Public Use
  Company Number: DE-AMGEN-DEUSP2010013453

PATIENT
  Age: 78 Year
  Sex: Male

DRUGS (3)
  1. ARANESP [Suspect]
     Dosage: 40 MUG, QWK
  2. ARANESP [Suspect]
     Indication: PRODUCT USED FOR UNKNOWN INDICATION
     Dosage: 80 MUG, QWK
  3. BISPROLOL COMP [Concomitant]

REACTIONS (4)
  - DRUG INTERACTION [None]
  - DRUG INEFFECTIVE [None]
  - DEATH [None]
  - ANAEMIA [None]
